FAERS Safety Report 13790785 (Version 3)
Quarter: 2017Q3

REPORT INFORMATION
  Report Type: Spontaneous
  Country: GB (occurrence: GB)
  Receive Date: 20170725
  Receipt Date: 20170907
  Transmission Date: 20171127
  Serious: Yes (Hospitalization, Other)
  Sender: FDA-Public Use
  Company Number: GB-TEVA-787799ACC

PATIENT
  Age: 73 Year
  Sex: Female

DRUGS (2)
  1. IMATINIB [Suspect]
     Active Substance: IMATINIB
     Indication: SYSTEMIC SCLERODERMA
     Route: 065
     Dates: start: 20170110, end: 20170308
  2. IMATINIB [Suspect]
     Active Substance: IMATINIB
     Indication: CHRONIC MYELOID LEUKAEMIA

REACTIONS (10)
  - Brain neoplasm [Unknown]
  - Second primary malignancy [Unknown]
  - Cerebrovascular accident [Unknown]
  - Anaemia [Unknown]
  - Meningioma [Unknown]
  - Seizure [Unknown]
  - Bone marrow failure [Recovering/Resolving]
  - Benign neoplasm [Unknown]
  - Pancytopenia [Unknown]
  - Thrombocytopenia [Unknown]

NARRATIVE: CASE EVENT DATE: 20170308
